FAERS Safety Report 9377592 (Version 1)
Quarter: 2013Q3

REPORT INFORMATION
  Report Type: Spontaneous
  Country: AT (occurrence: AT)
  Receive Date: 20130701
  Receipt Date: 20130701
  Transmission Date: 20140515
  Serious: Yes (Death, Hospitalization)
  Sender: FDA-Public Use
  Company Number: AT-BAYER-2013-077854

PATIENT
  Age: 84 Year
  Sex: Male

DRUGS (8)
  1. ACETYLSALICYLIC ACID({=100 MG) [Suspect]
     Indication: CORONARY ARTERIAL STENT INSERTION
     Dosage: 100 MG/DAY
  2. ACETYLSALICYLIC ACID({=100 MG) [Suspect]
     Indication: THROMBOSIS PROPHYLAXIS
  3. CLOPIDOGREL [Suspect]
     Indication: CORONARY ARTERIAL STENT INSERTION
     Dosage: 75 MG/DAY
  4. CLOPIDOGREL [Suspect]
     Indication: THROMBOSIS PROPHYLAXIS
  5. HEPARIN [Suspect]
     Indication: CORONARY ARTERIAL STENT INSERTION
     Dosage: 5000 U, ONCE
     Route: 042
  6. HEPARIN [Suspect]
     Indication: THROMBOSIS PROPHYLAXIS
  7. ABCIXIMAB [Suspect]
     Indication: CORONARY ARTERIAL STENT INSERTION
     Dosage: 0.25 MG/KG, ONCE
     Route: 042
  8. ABCIXIMAB [Suspect]
     Indication: THROMBOSIS PROPHYLAXIS

REACTIONS (2)
  - Cerebral haemorrhage [Fatal]
  - Cerebrovascular accident [Fatal]
